FAERS Safety Report 21824928 (Version 1)
Quarter: 2023Q1

REPORT INFORMATION
  Report Type: Spontaneous
  Country: US (occurrence: US)
  Receive Date: 20230105
  Receipt Date: 20230105
  Transmission Date: 20230417
  Serious: No
  Sender: FDA-Public Use
  Company Number: US-GILEAD-2023-0611541

PATIENT
  Sex: Male

DRUGS (12)
  1. BIKTARVY [Interacting]
     Active Substance: BICTEGRAVIR SODIUM\EMTRICITABINE\TENOFOVIR ALAFENAMIDE FUMARATE
     Indication: HIV infection
     Route: 065
  2. MAGNESIUM CITRATE [Interacting]
     Active Substance: MAGNESIUM CITRATE
     Indication: Product used for unknown indication
     Route: 065
  3. CALCIUM [Interacting]
     Active Substance: CALCIUM
     Indication: Product used for unknown indication
     Route: 065
  4. VITAMIN A [Interacting]
     Active Substance: VITAMIN A
     Indication: Product used for unknown indication
     Route: 065
  5. VITAMIN B [Interacting]
     Active Substance: VITAMIN B
     Indication: Product used for unknown indication
     Route: 065
  6. VITAMIN C [Interacting]
     Active Substance: ASCORBIC ACID
     Indication: Product used for unknown indication
     Route: 065
  7. VITAMIN D NOS [Suspect]
     Active Substance: VITAMIN D NOS
     Indication: Product used for unknown indication
     Route: 065
  8. .ALPHA.-TOCOPHEROL [Interacting]
     Active Substance: .ALPHA.-TOCOPHEROL
     Indication: Product used for unknown indication
     Route: 065
  9. ZINC [Interacting]
     Active Substance: ZINC
     Indication: Product used for unknown indication
     Route: 065
  10. CREATINE MONOHYDRATE [Interacting]
     Active Substance: CREATINE MONOHYDRATE
     Indication: Product used for unknown indication
     Route: 065
  11. COENZYME Q10 [Interacting]
     Active Substance: DIETARY SUPPLEMENT\UBIDECARENONE
     Indication: Product used for unknown indication
     Route: 065
  12. TESTOSTERONE [Interacting]
     Active Substance: TESTOSTERONE
     Indication: Product used for unknown indication
     Route: 065

REACTIONS (3)
  - Illness [Unknown]
  - Nervousness [Unknown]
  - Drug interaction [Unknown]
